FAERS Safety Report 8090474-X (Version None)
Quarter: 2012Q1

REPORT INFORMATION
  Report Type: 
  Country: None (occurrence: None)
  Receive Date: 20120129
  Receipt Date: 20111102
  Transmission Date: 20120608
  Serious: No
  Sender: FDA-Public Use
  Company Number: US-ABBOTT-11P-163-0871039-00

PATIENT
  Sex: Male
  Weight: 90.8 kg

DRUGS (5)
  1. UNKNOWN MEDICATION [Concomitant]
     Indication: CROHN'S DISEASE
  2. VARIOUS VITAMINS [Concomitant]
     Indication: VITAMIN SUPPLEMENTATION
  3. HUMIRA [Suspect]
     Route: 058
     Dates: start: 20110801
  4. HUMIRA [Suspect]
     Indication: CROHN'S DISEASE
     Route: 058
     Dates: start: 20110701, end: 20110701
  5. HUMIRA [Suspect]
     Route: 058
     Dates: start: 20110801, end: 20110801

REACTIONS (3)
  - COUGH [None]
  - TINEA PEDIS [None]
  - LOWER RESPIRATORY TRACT INFECTION [None]
